FAERS Safety Report 4915502-9 (Version None)
Quarter: 2006Q1

REPORT INFORMATION
  Report Type: 
  Country: None (occurrence: None)
  Receive Date: 20060217
  Receipt Date: 20050311
  Transmission Date: 20060701
  Serious: Yes (Hospitalization, Disabling, Other)
  Sender: FDA-Public Use
  Company Number: US-MERCK-0503USA02588

PATIENT
  Age: 55 Year
  Sex: Male

DRUGS (1)
  1. VIOXX [Suspect]
     Route: 048
     Dates: start: 20000101, end: 20030501

REACTIONS (26)
  - ANHEDONIA [None]
  - ASTHENIA [None]
  - ATELECTASIS [None]
  - BACK PAIN [None]
  - BLOOD PRESSURE INCREASED [None]
  - CARPAL TUNNEL DECOMPRESSION [None]
  - CHEST PAIN [None]
  - CORONARY ARTERY DISEASE [None]
  - DIABETES MELLITUS [None]
  - HAEMATURIA [None]
  - HEAT STROKE [None]
  - HYPERTENSION [None]
  - INTERVERTEBRAL DISC DEGENERATION [None]
  - MYALGIA [None]
  - MYOCARDIAL INFARCTION [None]
  - NEPHROLITHIASIS [None]
  - PAIN [None]
  - PAIN IN EXTREMITY [None]
  - PANCREATIC MASS [None]
  - PARAESTHESIA [None]
  - POSTOPERATIVE FEVER [None]
  - PYREXIA [None]
  - RASH [None]
  - RESTLESS LEGS SYNDROME [None]
  - SPLENECTOMY [None]
  - UMBILICAL HERNIA [None]
